FAERS Safety Report 14742480 (Version 1)
Quarter: 2018Q2

REPORT INFORMATION
  Report Type: Spontaneous
  Country: US (occurrence: US)
  Receive Date: 20180405
  Receipt Date: 20180405
  Transmission Date: 20180711
  Serious: Yes (Hospitalization)
  Sender: FDA-Public Use
  Company Number: None

PATIENT
  Age: 57 Year
  Sex: Female

DRUGS (1)
  1. IBRANCE [Suspect]
     Active Substance: PALBOCICLIB
     Indication: BREAST CANCER
     Route: 048

REACTIONS (5)
  - Full blood count decreased [None]
  - Dizziness [None]
  - Dyspnoea [None]
  - Fatigue [None]
  - Tachycardia [None]

NARRATIVE: CASE EVENT DATE: 20180329
